FAERS Safety Report 15340752 (Version 1)
Quarter: 2018Q3

REPORT INFORMATION
  Report Type: Spontaneous
  Country: US (occurrence: US)
  Receive Date: 20180831
  Receipt Date: 20180831
  Transmission Date: 20181010
  Serious: Yes (Other)
  Sender: FDA-Public Use
  Company Number: US-SA-2018SA130995

PATIENT
  Sex: Female

DRUGS (12)
  1. CYTOXAN [Concomitant]
     Active Substance: CYCLOPHOSPHAMIDE
     Dosage: 130 MG, Q3W
     Route: 065
     Dates: start: 20080410, end: 20080410
  2. ALOXI [Concomitant]
     Active Substance: PALONOSETRON HYDROCHLORIDE
     Dosage: 0.25 MG, Q3W
     Route: 065
     Dates: start: 20080410, end: 20080410
  3. TAXOTERE [Suspect]
     Active Substance: DOCETAXEL
     Dosage: 100 MG, Q3W
     Route: 042
     Dates: start: 20080728, end: 20080728
  4. CYTOXAN [Concomitant]
     Active Substance: CYCLOPHOSPHAMIDE
     Dosage: 100 MG, Q3W
     Dates: start: 20080728, end: 20080728
  5. ATIVAN [Concomitant]
     Active Substance: LORAZEPAM
     Dosage: 0.5 MG, Q3W
     Route: 065
     Dates: start: 20080410, end: 20080410
  6. ADRIAMYCIN [Concomitant]
     Active Substance: DOXORUBICIN HYDROCHLORIDE
     Dosage: 85 UNK
     Route: 065
     Dates: start: 20080728, end: 20080728
  7. DECADRON [DEXAMETHASONE] [Concomitant]
     Dosage: 10 MG, Q3W
     Route: 065
     Dates: start: 20080410, end: 20080410
  8. DECADRON [DEXAMETHASONE] [Concomitant]
     Dosage: 10 MG, Q3W
     Route: 065
     Dates: start: 20080728, end: 20080728
  9. ATIVAN [Concomitant]
     Active Substance: LORAZEPAM
     Dosage: 0.5 MG, Q3W
     Route: 065
     Dates: start: 20080728, end: 20080728
  10. TAXOTERE [Suspect]
     Active Substance: DOCETAXEL
     Dosage: 130 MG, Q3W
     Route: 042
     Dates: start: 20080410, end: 20080410
  11. ADRIAMYCIN [Concomitant]
     Active Substance: DOXORUBICIN HYDROCHLORIDE
     Dosage: 85 MG, Q3W
     Route: 065
     Dates: start: 20080410, end: 20080410
  12. ALOXI [Concomitant]
     Active Substance: PALONOSETRON HYDROCHLORIDE
     Dosage: 0.25 UNK
     Route: 065
     Dates: start: 20080728, end: 20080728

REACTIONS (1)
  - Alopecia [Recovering/Resolving]
